FAERS Safety Report 20561437 (Version 1)
Quarter: 2022Q1

REPORT INFORMATION
  Report Type: Spontaneous
  Country: FR (occurrence: FR)
  Receive Date: 20220307
  Receipt Date: 20220307
  Transmission Date: 20220423
  Serious: Yes (Life-Threatening, Other)
  Sender: FDA-Public Use
  Company Number: FR-NOVARTISPH-GXKR2005FR04392

PATIENT
  Age: 87 Year
  Sex: Female

DRUGS (2)
  1. COTRIMOXAZOLE [Interacting]
     Active Substance: SULFAMETHOXAZOLE\TRIMETHOPRIM
     Indication: Urinary tract infection
     Dosage: 1 DF, QD, (80/400 MG, PER DAY
     Route: 065
  2. GLICLAZIDE [Interacting]
     Active Substance: GLICLAZIDE
     Indication: Type 2 diabetes mellitus
     Dosage: 60 MG, QD ( PER DAY)
     Route: 065

REACTIONS (2)
  - Hypoglycaemic coma [Unknown]
  - Drug interaction [Unknown]
